FAERS Safety Report 7739499-1 (Version None)
Quarter: 2011Q3

REPORT INFORMATION
  Report Type: 
  Country: None (occurrence: None)
  Receive Date: 20110909
  Receipt Date: 20110829
  Transmission Date: 20111222
  Serious: Yes (Death)
  Sender: FDA-Public Use
  Company Number: JP-EISAI INC-E7389-01358-SPO-JP

PATIENT
  Age: 46 Year

DRUGS (2)
  1. HALAVEN [Suspect]
     Indication: BREAST CANCER
     Route: 041
     Dates: start: 20110811
  2. HALAVEN [Suspect]
     Route: 041
     Dates: start: 20110728, end: 20110728

REACTIONS (4)
  - HEPATIC FUNCTION ABNORMAL [None]
  - NEOPLASM MALIGNANT [None]
  - HYPOALBUMINAEMIA [None]
  - NEUTROPENIA [None]
